FAERS Safety Report 6588688-0 (Version None)
Quarter: 2010Q1

REPORT INFORMATION
  Report Type: 
  Country: None (occurrence: None)
  Receive Date: 20100212
  Receipt Date: 20100129
  Transmission Date: 20100710
  Serious: Yes (Disabling)
  Sender: FDA-Public Use
  Company Number: 2010PV000001

PATIENT
  Sex: Male

DRUGS (2)
  1. DEPOCYT [Suspect]
     Indication: METASTASES TO MENINGES
     Dosage: 50 MG, INTHA
  2. DEPO-MEDROL [Suspect]
     Indication: METASTASES TO MENINGES

REACTIONS (1)
  - PARAPLEGIA [None]
